FAERS Safety Report 25038136 (Version 5)
Quarter: 2025Q3

REPORT INFORMATION
  Report Type: Spontaneous
  Country: CA (occurrence: CA)
  Receive Date: 20250304
  Receipt Date: 20250908
  Transmission Date: 20251021
  Serious: Yes (Other)
  Sender: PFIZER
  Company Number: CA-PFIZER INC-202201195769

PATIENT
  Age: 78 Year
  Sex: Female

DRUGS (36)
  1. RUXIENCE [Suspect]
     Active Substance: RITUXIMAB-PVVR
     Indication: Sjogren^s syndrome
     Route: 042
     Dates: start: 20221221
  2. RUXIENCE [Suspect]
     Active Substance: RITUXIMAB-PVVR
     Indication: Osteoporosis
     Route: 042
     Dates: start: 20221221
  3. RUXIENCE [Suspect]
     Active Substance: RITUXIMAB-PVVR
     Indication: Raynaud^s phenomenon
     Route: 042
     Dates: start: 20230104
  4. RUXIENCE [Suspect]
     Active Substance: RITUXIMAB-PVVR
     Route: 042
     Dates: start: 20230104
  5. RUXIENCE [Suspect]
     Active Substance: RITUXIMAB-PVVR
     Route: 042
     Dates: start: 20230717
  6. RUXIENCE [Suspect]
     Active Substance: RITUXIMAB-PVVR
     Route: 042
     Dates: start: 20230731
  7. RUXIENCE [Suspect]
     Active Substance: RITUXIMAB-PVVR
     Route: 042
     Dates: start: 20240201, end: 20240215
  8. RUXIENCE [Suspect]
     Active Substance: RITUXIMAB-PVVR
     Route: 042
     Dates: start: 20240227
  9. RUXIENCE [Suspect]
     Active Substance: RITUXIMAB-PVVR
     Route: 042
     Dates: start: 20240822
  10. RUXIENCE [Suspect]
     Active Substance: RITUXIMAB-PVVR
     Route: 042
     Dates: start: 20241003
  11. RUXIENCE [Suspect]
     Active Substance: RITUXIMAB-PVVR
     Route: 042
     Dates: start: 20250227
  12. RUXIENCE [Suspect]
     Active Substance: RITUXIMAB-PVVR
     Route: 042
     Dates: start: 20250313
  13. RUXIENCE [Suspect]
     Active Substance: RITUXIMAB-PVVR
     Route: 042
     Dates: start: 20250903
  14. ACETAMINOPHEN [Concomitant]
     Active Substance: ACETAMINOPHEN
     Indication: Premedication
     Route: 048
     Dates: start: 20221221, end: 20221221
  15. ACETAMINOPHEN [Concomitant]
     Active Substance: ACETAMINOPHEN
     Route: 048
     Dates: start: 20230104, end: 20230104
  16. ACETAMINOPHEN [Concomitant]
     Active Substance: ACETAMINOPHEN
     Dates: start: 20230717, end: 20230717
  17. ACETAMINOPHEN [Concomitant]
     Active Substance: ACETAMINOPHEN
     Route: 048
     Dates: start: 20240201, end: 20240201
  18. ALENDRONATE SODIUM [Concomitant]
     Active Substance: ALENDRONATE SODIUM
  19. ATORVASTATIN [Concomitant]
     Active Substance: ATORVASTATIN
  20. CALCIUM [Concomitant]
     Active Substance: CALCIUM
  21. CALCIUM CARBONATE [Concomitant]
     Active Substance: CALCIUM CARBONATE
  22. COMBIGAN [Concomitant]
     Active Substance: BRIMONIDINE TARTRATE\TIMOLOL MALEATE
  23. DIPHENHYDRAMINE [Concomitant]
     Active Substance: DIPHENHYDRAMINE
     Indication: Premedication
     Route: 048
     Dates: start: 20221221, end: 20221221
  24. DIPHENHYDRAMINE [Concomitant]
     Active Substance: DIPHENHYDRAMINE
     Route: 048
     Dates: start: 20230104, end: 20230104
  25. DIPHENHYDRAMINE [Concomitant]
     Active Substance: DIPHENHYDRAMINE
     Dates: start: 20230717, end: 20230717
  26. DIPHENHYDRAMINE [Concomitant]
     Active Substance: DIPHENHYDRAMINE
     Route: 048
     Dates: start: 20240201, end: 20240201
  27. ERYTHROMYCIN [Concomitant]
     Active Substance: ERYTHROMYCIN
  28. HYALURONATE SODIUM [Concomitant]
     Active Substance: HYALURONATE SODIUM
  29. LUMIGAN [Concomitant]
     Active Substance: BIMATOPROST
  30. OCUNOX [OXYBUPROCAINE HYDROCHLORIDE] [Concomitant]
  31. PERINDOPRIL [Concomitant]
     Active Substance: PERINDOPRIL
  32. PLAQUENIL [Concomitant]
     Active Substance: HYDROXYCHLOROQUINE SULFATE
     Dates: start: 2014
  33. PREDNISONE [Concomitant]
     Active Substance: PREDNISONE
  34. VARICELLA-ZOSTER VIRUS STRAIN OKA/MERCK LIVE ANTIGEN [Concomitant]
     Active Substance: VARICELLA-ZOSTER VIRUS STRAIN OKA/MERCK LIVE ANTIGEN
     Dates: start: 2025
  35. VITAMIN D NOS [Concomitant]
     Active Substance: CHOLECALCIFEROL\ERGOCALCIFEROL
     Dosage: 10000 IU WEEKLY
  36. ZOPICLONE [Concomitant]
     Active Substance: ZOPICLONE

REACTIONS (13)
  - Hypertension [Not Recovered/Not Resolved]
  - Muscular weakness [Not Recovered/Not Resolved]
  - Heart rate increased [Recovered/Resolved]
  - Dyspnoea [Not Recovered/Not Resolved]
  - Atrial fibrillation [Recovered/Resolved]
  - Oedema [Recovering/Resolving]
  - Weight decreased [Not Recovered/Not Resolved]
  - Upper limb fracture [Recovering/Resolving]
  - Wrist fracture [Unknown]
  - Fall [Recovering/Resolving]
  - Eye infection [Recovered/Resolved]
  - Pallor [Not Recovered/Not Resolved]
  - Off label use [Unknown]

NARRATIVE: CASE EVENT DATE: 20221221
